FAERS Safety Report 5909724-8 (Version None)
Quarter: 2008Q4

REPORT INFORMATION
  Report Type: 
  Country: None (occurrence: None)
  Receive Date: 20081007
  Receipt Date: 20080926
  Transmission Date: 20090506
  Serious: Yes (Life-Threatening, Disabling)
  Sender: FDA-Public Use
  Company Number: JP-SP-2008-02840

PATIENT
  Age: 49 Year
  Sex: Female

DRUGS (3)
  1. IMMUCYST [Suspect]
     Indication: BLADDER CANCER
     Route: 043
     Dates: start: 20080321, end: 20080903
  2. IMMUCYST [Suspect]
     Route: 043
     Dates: start: 20080321, end: 20080903
  3. DOXIFLURIDINE [Concomitant]
     Dates: start: 20080324, end: 20080903

REACTIONS (6)
  - BLADDER DISORDER [None]
  - BOVINE TUBERCULOSIS [None]
  - CHEST X-RAY ABNORMAL [None]
  - MALAISE [None]
  - PYREXIA [None]
  - RESPIRATORY DISORDER [None]
